FAERS Safety Report 8054041-6 (Version None)
Quarter: 2012Q1

REPORT INFORMATION
  Report Type: 
  Country: None (occurrence: None)
  Receive Date: 20120118
  Receipt Date: 20120111
  Transmission Date: 20120608
  Serious: Yes (Hospitalization)
  Sender: FDA-Public Use
  Company Number: KR-ABBOTT-12P-090-0892401-00

PATIENT
  Sex: Female
  Weight: 58 kg

DRUGS (8)
  1. CALCIUM CARBONATE [Concomitant]
     Route: 048
     Dates: start: 20100120, end: 20100324
  2. CALCIUM CARBONATE [Concomitant]
     Indication: HYPERPHOSPHATAEMIA
     Route: 048
     Dates: start: 20090126, end: 20100120
  3. ZEMPLAR [Suspect]
     Route: 042
     Dates: start: 20090527, end: 20090624
  4. ZEMPLAR [Suspect]
     Route: 042
     Dates: start: 20090729, end: 20090826
  5. ZEMPLAR [Suspect]
     Route: 042
     Dates: start: 20091224
  6. ZEMPLAR [Suspect]
     Indication: HYPERPARATHYROIDISM
     Route: 042
     Dates: start: 20090225, end: 20090403
  7. CALCIUM CARBONATE [Concomitant]
     Route: 048
     Dates: start: 20100325
  8. ZEMPLAR [Suspect]
     Route: 042
     Dates: start: 20090930, end: 20091223

REACTIONS (1)
  - ARTERIOVENOUS FISTULA SITE COMPLICATION [None]
